FAERS Safety Report 17124930 (Version 2)
Quarter: 2019Q4

REPORT INFORMATION
  Report Type: Spontaneous
  Country: NO (occurrence: NO)
  Receive Date: 20191206
  Receipt Date: 20191212
  Transmission Date: 20200122
  Serious: Yes (Death)
  Sender: FDA-Public Use
  Company Number: NO-JNJFOC-20191205115

PATIENT
  Age: 32 Year
  Sex: Male

DRUGS (3)
  1. XEPLION [Suspect]
     Active Substance: PALIPERIDONE PALMITATE
     Indication: PSYCHOTIC DISORDER
     Dosage: TWO TREATMENTS WERE GIVEN BEFORE HE DIED ON 23/FEB/2019: - 150 MG 28/JAN/2019 (DAY1) - 100 MG 04/.
     Route: 030
     Dates: start: 20190128, end: 20190128
  2. XEPLION [Suspect]
     Active Substance: PALIPERIDONE PALMITATE
     Dosage: DAY 8 DOSE
     Route: 030
     Dates: start: 20190204, end: 20190204
  3. RISPERDAL [Concomitant]
     Active Substance: RISPERIDONE
     Indication: PSYCHOTIC DISORDER
     Dosage: 04/FEB/2019: DECREASED DOSAGE FROM 2 MG X 2 TO 1 MG X 2 AND THEN TO BE DISCONTINUED IN DAY 15
     Route: 048
     Dates: start: 201404, end: 20190211

REACTIONS (1)
  - Pulmonary embolism [Fatal]
